FAERS Safety Report 5223812-3 (Version None)
Quarter: 2007Q1

REPORT INFORMATION
  Report Type: 
  Country: None (occurrence: None)
  Receive Date: 20070130
  Receipt Date: 20070124
  Transmission Date: 20070707
  Serious: Yes (Hospitalization)
  Sender: FDA-Public Use
  Company Number: US-BAYER-200616584BWH

PATIENT
  Age: 63 Year
  Sex: Male

DRUGS (13)
  1. NEXAVAR [Suspect]
     Indication: RENAL CELL CARCINOMA STAGE UNSPECIFIED
     Dosage: TOTAL DAILY DOSE: 800 MG  UNIT DOSE: 200 MG
     Route: 048
     Dates: start: 20061003, end: 20061113
  2. NEXAVAR [Suspect]
     Route: 048
     Dates: start: 20061201
  3. NEXAVAR [Suspect]
     Dosage: TOTAL DAILY DOSE: 400 MG  UNIT DOSE: 200 MG
     Route: 048
     Dates: start: 20061113
  4. LIPITOR [Concomitant]
  5. FLUOXETINE [Concomitant]
  6. ATENOLOL [Concomitant]
  7. ZETIA [Concomitant]
  8. LORAZEPAM [Concomitant]
  9. AMBIEN [Concomitant]
  10. FISH OIL [Concomitant]
  11. METOPROLOL TARTRATE [Concomitant]
  12. HYDROCHLOROTHIAZIDE [Concomitant]
  13. PROZAC [Concomitant]

REACTIONS (6)
  - ALOPECIA [None]
  - GINGIVAL BLEEDING [None]
  - HEADACHE [None]
  - HYPERTENSION [None]
  - MENTAL STATUS CHANGES [None]
  - OEDEMA PERIPHERAL [None]
